FAERS Safety Report 6936529-1 (Version None)
Quarter: 2010Q3

REPORT INFORMATION
  Report Type: 
  Country: None (occurrence: None)
  Receive Date: 20100823
  Receipt Date: 20100811
  Transmission Date: 20110219
  Serious: Yes (Other)
  Sender: FDA-Public Use
  Company Number: US-PFIZER INC-2010094088

PATIENT
  Sex: Male
  Weight: 87.075 kg

DRUGS (9)
  1. CHANTIX [Suspect]
     Indication: SMOKING CESSATION THERAPY
     Dosage: 0.5 MG, 1X/DAY
     Route: 048
     Dates: start: 20100701
  2. CHANTIX [Suspect]
     Dosage: 1 MG, 2X/DAY
     Route: 048
  3. TRAMADOL [Concomitant]
     Dosage: 600 MG, 3X/DAY
     Route: 048
  4. LEXAPRO [Concomitant]
     Dosage: 20 MG DAILY
     Route: 048
  5. MACRODANTIN [Concomitant]
     Dosage: 100 MG DAILY
     Route: 048
  6. BACLOFEN [Concomitant]
     Dosage: 10 MG, 4X/DAY
     Route: 048
  7. CYMBALTA [Concomitant]
     Dosage: 60 MG DAILY
     Route: 048
  8. TESTOSTERONE [Concomitant]
     Dosage: 200 MG EVERY TWO WEEKS
     Route: 048
  9. XANAX [Concomitant]
     Dosage: 1 MG, AS NEEDED
     Route: 048

REACTIONS (5)
  - DYSGEUSIA [None]
  - FRUSTRATION [None]
  - IRRITABILITY [None]
  - MUSCLE SPASMS [None]
  - TOBACCO WITHDRAWAL SYMPTOMS [None]
